FAERS Safety Report 9250561 (Version 1)
Quarter: 2013Q2

REPORT INFORMATION
  Report Type: Spontaneous
  Country: US (occurrence: US)
  Receive Date: 20130424
  Receipt Date: 20130424
  Transmission Date: 20140414
  Serious: No
  Sender: FDA-Public Use
  Company Number: US-009507513-1304USA014349

PATIENT
  Age: 29 Year
  Sex: Male

DRUGS (2)
  1. PROPECIA [Suspect]
     Indication: ANDROGENETIC ALOPECIA
     Dosage: 1 MG, QD
     Route: 048
     Dates: start: 2004
  2. XYREM [Suspect]
     Indication: SLEEP DISORDER

REACTIONS (7)
  - Sleep disorder [Unknown]
  - Nausea [Unknown]
  - Morbid thoughts [Unknown]
  - Hair colour changes [Unknown]
  - Vomiting [Unknown]
  - Decreased appetite [Unknown]
  - Depression [Unknown]
